FAERS Safety Report 19850671 (Version 2)
Quarter: 2021Q4

REPORT INFORMATION
  Report Type: Report from Study
  Country: None (occurrence: US)
  Receive Date: 20210917
  Receipt Date: 20211013
  Transmission Date: 20220303
  Serious: Yes (Other)
  Sender: FDA-Public Use
  Company Number: US-ABBVIE-21K-163-4079103-00

PATIENT
  Sex: Male

DRUGS (5)
  1. IMBRUVICA [Suspect]
     Active Substance: IBRUTINIB
     Indication: Product used for unknown indication
     Route: 048
     Dates: end: 2021
  2. IMBRUVICA [Suspect]
     Active Substance: IBRUTINIB
     Route: 048
     Dates: start: 2021
  3. COVID-19 VACCINE [Concomitant]
     Indication: COVID-19 immunisation
     Dosage: DOSE 1
     Route: 030
  4. COVID-19 VACCINE [Concomitant]
     Dosage: DOSE 2
     Route: 030
  5. COVID-19 VACCINE [Concomitant]
     Dosage: BOOSTER DOSE
     Route: 030

REACTIONS (6)
  - Surgery [Not Recovered/Not Resolved]
  - White blood cell count increased [Recovered/Resolved]
  - Dyspepsia [Not Recovered/Not Resolved]
  - Headache [Not Recovered/Not Resolved]
  - Squamous cell carcinoma [Unknown]
  - Prostate infection [Not Recovered/Not Resolved]

NARRATIVE: CASE EVENT DATE: 20210101
